FAERS Safety Report 8624127-3 (Version None)
Quarter: 2012Q3

REPORT INFORMATION
  Report Type: 
  Country: None (occurrence: None)
  Receive Date: 20120827
  Receipt Date: 20120820
  Transmission Date: 20120928
  Serious: Yes (Other)
  Sender: FDA-Public Use
  Company Number: US-JNJFOC-20120810211

PATIENT
  Sex: Female
  Weight: 62.6 kg

DRUGS (3)
  1. CELEBREX [Concomitant]
     Indication: ANTIINFLAMMATORY THERAPY
     Route: 065
  2. REMICADE [Suspect]
     Indication: RHEUMATOID ARTHRITIS
     Route: 042
     Dates: start: 20030101
  3. METHOTREXATE [Concomitant]
     Indication: RHEUMATOID ARTHRITIS
     Route: 048

REACTIONS (3)
  - PLEURISY [None]
  - STRESS FRACTURE [None]
  - FRACTURED SACRUM [None]
